FAERS Safety Report 8773774 (Version 1)
Quarter: 2012Q4

REPORT INFORMATION
  Report Type: 
  Country: US (occurrence: US)
  Receive Date: 20120907
  Receipt Date: 20120907
  Transmission Date: 20130627
  Serious: No
  Sender: FDA-Public Use
  Company Number: US-PFIZER INC-2012217516

PATIENT
  Age: 51 Year
  Sex: Female

DRUGS (3)
  1. DETROL LA [Suspect]
     Dosage: 4 mg, 1x/day
  2. LISINIPRIL [Concomitant]
     Dosage: UNK,QD
  3. ONE A DAY VIT [Concomitant]
     Dosage: UNK

REACTIONS (1)
  - Feeling abnormal [Unknown]
